FAERS Safety Report 5926427-4 (Version None)
Quarter: 2008Q4

REPORT INFORMATION
  Report Type: 
  Country: None (occurrence: None)
  Receive Date: 20081017
  Receipt Date: 20081009
  Transmission Date: 20090506
  Serious: Yes (Death, Hospitalization)
  Sender: FDA-Public Use
  Company Number: GXKR2006GB02446

PATIENT
  Age: 71 Year
  Sex: Female

DRUGS (13)
  1. PIROXICAM [Suspect]
     Dosage: 20 MG BID ORAL
     Route: 048
     Dates: start: 20031222
  2. ACETYLSALICYLIC ACID SRT [Suspect]
     Dosage: 150 MG UNK ORAL
     Route: 048
     Dates: start: 20051001
  3. ANTURAN (SULFINPYRAZOLE) UNKNOWN [Suspect]
     Dosage: 100 MG QD ORAL
     Route: 048
     Dates: start: 20031222
  4. PREDNISONE [Suspect]
     Dosage: 10 MG QD ORAL
     Route: 048
     Dates: start: 20051021
  5. MUELIN SA (THEOPHYLLINE) TABLET [Suspect]
     Dosage: 175 MG BID ORAL
     Route: 048
     Dates: start: 20051001
  6. DIHYDROCODEINE COMPOUND [Concomitant]
  7. RANITIDINE [Concomitant]
  8. SALBUTAMOL (SALBUTAMOL) [Concomitant]
  9. BECLOMETHASONE DIPROPIONATE [Concomitant]
  10. GAVISCON (ALGINIC ACID,ALUMINIUM HYDROXIDE GEL, DRIED, MAGNESIUM TRISI [Concomitant]
  11. ADIZEM (DILTIAZEM HYDROCHLORIDE) [Concomitant]
  12. AZATHIOPRINE [Concomitant]
  13. DIAZEPAM [Concomitant]

REACTIONS (3)
  - CARDIAC ARREST [None]
  - DUODENAL ULCER PERFORATION [None]
  - MYOCARDIAL ISCHAEMIA [None]
